FAERS Safety Report 20513626 (Version 1)
Quarter: 2022Q1

REPORT INFORMATION
  Report Type: Spontaneous
  Country: US (occurrence: US)
  Receive Date: 20220224
  Receipt Date: 20220224
  Transmission Date: 20220424
  Serious: Yes (Other)
  Sender: FDA-Public Use
  Company Number: US-LANTHEUS-LMI-2018-00338

PATIENT
  Age: 50 Year
  Sex: Female
  Weight: 109 kg

DRUGS (12)
  1. DEFINITY [Suspect]
     Active Substance: PERFLUTREN
     Indication: Echocardiogram
     Dosage: 4 ML, (1.3 ML DEFINITY PREPARED IN 8 DILUENT)
     Route: 042
     Dates: start: 20180626, end: 20180626
  2. DICYCLOMINE                        /00068601/ [Concomitant]
     Indication: Product used for unknown indication
  3. PANTOPRAZOLE [Concomitant]
     Active Substance: PANTOPRAZOLE
     Indication: Product used for unknown indication
  4. SUCRALFATE [Concomitant]
     Active Substance: SUCRALFATE
     Indication: Product used for unknown indication
  5. ACETAMINOPHEN [Concomitant]
     Active Substance: ACETAMINOPHEN
     Indication: Product used for unknown indication
  6. FUROSEMIDE [Concomitant]
     Active Substance: FUROSEMIDE
     Indication: Product used for unknown indication
  7. HEPRIN                             /00027704/ [Concomitant]
     Indication: Product used for unknown indication
  8. INSULIN NOS [Concomitant]
     Active Substance: INSULIN NOS
     Indication: Product used for unknown indication
  9. XYLOCAINE                          /00033401/ [Concomitant]
     Indication: Product used for unknown indication
  10. MORPHINE [Concomitant]
     Active Substance: MORPHINE
     Indication: Product used for unknown indication
  11. ZOFRAN                             /00955301/ [Concomitant]
     Indication: Product used for unknown indication
  12. COMPAZINE                          /00013302/ [Concomitant]
     Indication: Product used for unknown indication

REACTIONS (2)
  - Oxygen saturation decreased [Recovered/Resolved]
  - Dyspnoea [Recovered/Resolved]

NARRATIVE: CASE EVENT DATE: 20180626
